FAERS Safety Report 14318091 (Version 3)
Quarter: 2018Q2

REPORT INFORMATION
  Report Type: Spontaneous
  Country: US (occurrence: US)
  Receive Date: 20171222
  Receipt Date: 20180420
  Transmission Date: 20180711
  Serious: No
  Sender: FDA-Public Use
  Company Number: US-009507513-1712USA011474

PATIENT
  Age: 86 Year
  Sex: Male

DRUGS (2)
  1. INTRON A [Suspect]
     Active Substance: INTERFERON ALFA-2B
     Dosage: 1 MIU/ML FOUR TIMES DAILY
     Route: 061
  2. INTRON A [Suspect]
     Active Substance: INTERFERON ALFA-2B
     Indication: SQUAMOUS CELL CARCINOMA
     Dosage: 10 MILION INTERNATIONAL UNITS/0.5 CC (5 MONTHLY)

REACTIONS (2)
  - Product use issue [Unknown]
  - Drug effect incomplete [Unknown]
